FAERS Safety Report 7837521 (Version 2)
Quarter: 2020Q3

REPORT INFORMATION
  Report Type: Spontaneous
  Country: DK (occurrence: DK)
  Receive Date: 20110302
  Receipt Date: 20200803
  Transmission Date: 20201103
  Serious: Yes (Hospitalization)
  Sender: FDA-Public Use
  Company Number: DK-PFIZER INC-2011041108

PATIENT
  Age: 55 Year
  Sex: Female

DRUGS (4)
  1. IMOZOP [Concomitant]
     Active Substance: ZOPICLONE
     Route: 048
  2. OXAZEPAM. [Concomitant]
     Active Substance: OXAZEPAM
  3. LYRICA [Suspect]
     Active Substance: PREGABALIN
     Indication: SCHIZOPHRENIA
     Dosage: UNK
     Route: 048
     Dates: start: 200712, end: 200803
  4. TRILAFON [Concomitant]
     Active Substance: PERPHENAZINE

REACTIONS (7)
  - Mental impairment [Unknown]
  - Tinnitus [Not Recovered/Not Resolved]
  - Off label use [Unknown]
  - Paraesthesia [Not Recovered/Not Resolved]
  - Anal incontinence [Not Recovered/Not Resolved]
  - Restless legs syndrome [Not Recovered/Not Resolved]
  - Product use in unapproved indication [Unknown]

NARRATIVE: CASE EVENT DATE: 200712
